FAERS Safety Report 19737837 (Version 1)
Quarter: 2021Q3

REPORT INFORMATION
  Report Type: Spontaneous
  Country: AT (occurrence: AT)
  Receive Date: 20210823
  Receipt Date: 20210823
  Transmission Date: 20211014
  Serious: Yes (Other)
  Sender: FDA-Public Use
  Company Number: AT-MYLANLABS-2021M1053317

PATIENT
  Age: 30 Year
  Sex: Female

DRUGS (3)
  1. METHOTREXATE. [Suspect]
     Active Substance: METHOTREXATE
     Dosage: 15 MG, QW
     Route: 065
     Dates: end: 2018
  2. METHOTREXATE. [Suspect]
     Active Substance: METHOTREXATE
     Dosage: 20 MG, QW
     Route: 065
  3. METHOTREXATE. [Suspect]
     Active Substance: METHOTREXATE
     Indication: PRODUCT USED FOR UNKNOWN INDICATION
     Dosage: 10 MG, QW
     Route: 065
     Dates: start: 201511

REACTIONS (8)
  - Psoriatic arthropathy [Recovered/Resolved]
  - Arthritis [Unknown]
  - Condition aggravated [Unknown]
  - Skin disorder [Unknown]
  - Nail psoriasis [Unknown]
  - Alopecia [Unknown]
  - Dactylitis [Unknown]
  - Joint swelling [Unknown]

NARRATIVE: CASE EVENT DATE: 201803
